FAERS Safety Report 21321575 (Version 2)
Quarter: 2022Q3

REPORT INFORMATION
  Report Type: Spontaneous
  Country: NL (occurrence: NL)
  Receive Date: 20220912
  Receipt Date: 20220915
  Transmission Date: 20221027
  Serious: Yes (Hospitalization, Other)
  Sender: FDA-Public Use
  Company Number: NL-ORGANON-O2209NLD000578

PATIENT
  Age: 41 Year
  Sex: Female

DRUGS (4)
  1. DESLORATADINE [Suspect]
     Active Substance: DESLORATADINE
     Dosage: 8 TABLETS X 5 MILLIGRAM
     Route: 048
  2. TOPIRAMATE [Suspect]
     Active Substance: TOPIRAMATE
     Dosage: 510 TABLETS X 50 MG
     Route: 048
  3. VENLAFAXINE [Suspect]
     Active Substance: VENLAFAXINE HYDROCHLORIDE
     Dosage: 170 TABLETS X 75 MG
     Route: 048
  4. QUETIAPINE [Suspect]
     Active Substance: QUETIAPINE
     Dosage: 30 TABLETS X 25MG
     Route: 048

REACTIONS (4)
  - Toxicity to various agents [Unknown]
  - Coma [Unknown]
  - Hypotension [Unknown]
  - Seizure [Unknown]
